FAERS Safety Report 7780605-0 (Version None)
Quarter: 2011Q3

REPORT INFORMATION
  Report Type: 
  Country: None (occurrence: None)
  Receive Date: 20110927
  Receipt Date: 20100902
  Transmission Date: 20111222
  Serious: No
  Sender: FDA-Public Use
  Company Number: US-BRISTOL-MYERS SQUIBB COMPANY-15268709

PATIENT
  Age: 47 Year
  Sex: Female
  Weight: 76 kg

DRUGS (4)
  1. MULTI-VITAMIN [Concomitant]
  2. AVAPRO [Suspect]
     Dates: start: 20100801
  3. COZAAR [Suspect]
  4. ASPIRIN [Concomitant]

REACTIONS (3)
  - SWELLING [None]
  - NAUSEA [None]
  - OEDEMA PERIPHERAL [None]
